FAERS Safety Report 13373469 (Version 1)
Quarter: 2017Q1

REPORT INFORMATION
  Report Type: Spontaneous
  Country: US (occurrence: US)
  Receive Date: 20170324
  Receipt Date: 20170324
  Transmission Date: 20170429
  Serious: Yes (Hospitalization)
  Sender: FDA-Public Use
  Company Number: None

PATIENT
  Age: 51 Year
  Sex: Male
  Weight: 92.3 kg

DRUGS (6)
  1. IPILIMUMAB [Suspect]
     Active Substance: IPILIMUMAB
     Indication: ADJUVANT THERAPY
     Dosage: IPILIMUMAB 1 MG/KG Q 6 WEEKS IV
     Route: 042
     Dates: start: 20161222
  2. NIVOLUMAB [Suspect]
     Active Substance: NIVOLUMAB
     Indication: MALIGNANT MELANOMA
     Route: 042
     Dates: start: 20161222
  3. IPILIMUMAB [Suspect]
     Active Substance: IPILIMUMAB
     Indication: MALIGNANT MELANOMA
     Dosage: IPILIMUMAB 1 MG/KG Q 6 WEEKS IV
     Route: 042
     Dates: start: 20161222
  4. MS CONTIN [Concomitant]
     Active Substance: MORPHINE SULFATE
  5. NIVOLUMAB [Suspect]
     Active Substance: NIVOLUMAB
     Indication: ADJUVANT THERAPY
     Route: 042
     Dates: start: 20161222
  6. RADIATION [Concomitant]
     Active Substance: RADIATION THERAPY

REACTIONS (2)
  - Disease progression [None]
  - Cancer pain [None]

NARRATIVE: CASE EVENT DATE: 20170114
